FAERS Safety Report 15928595 (Version 1)
Quarter: 2019Q1

REPORT INFORMATION
  Report Type: Spontaneous
  Country: DE (occurrence: DE)
  Receive Date: 20190206
  Receipt Date: 20190206
  Transmission Date: 20190417
  Serious: Yes (Life-Threatening)
  Sender: FDA-Public Use
  Company Number: DE-US WORLDMEDS, LLC-E2B_00002854

PATIENT
  Sex: Female

DRUGS (1)
  1. XADAGO [Suspect]
     Active Substance: SAFINAMIDE MESYLATE
     Indication: PRODUCT USED FOR UNKNOWN INDICATION

REACTIONS (1)
  - Myocardial infarction [Unknown]
